FAERS Safety Report 9620186 (Version 1)
Quarter: 2013Q4

REPORT INFORMATION
  Report Type: Spontaneous
  Country: AU (occurrence: AU)
  Receive Date: 20131014
  Receipt Date: 20131014
  Transmission Date: 20140711
  Serious: Yes (Disabling, Other)
  Sender: FDA-Public Use
  Company Number: PHHY2013AU113005

PATIENT
  Age: 68 Year
  Sex: Male

DRUGS (2)
  1. ATORVASTATIN [Suspect]
     Dosage: 40 MG, UNK
  2. VERAPAMIL [Interacting]
     Dosage: 240 MG, QD

REACTIONS (6)
  - Rhabdomyolysis [Not Recovered/Not Resolved]
  - Blood creatine phosphokinase increased [Recovered/Resolved]
  - Muscular weakness [Not Recovered/Not Resolved]
  - Chromaturia [Unknown]
  - Myositis [Not Recovered/Not Resolved]
  - Drug interaction [Unknown]
